FAERS Safety Report 8461612-1 (Version None)
Quarter: 2012Q2

REPORT INFORMATION
  Report Type: 
  Country: None (occurrence: None)
  Receive Date: 20120625
  Receipt Date: 20120618
  Transmission Date: 20120825
  Serious: Yes (Other)
  Sender: FDA-Public Use
  Company Number: PHHY2012FI053087

PATIENT

DRUGS (1)
  1. RITALIN [Suspect]
     Dosage: 1 DF, DAILY
     Route: 048

REACTIONS (2)
  - DRUG INEFFECTIVE [None]
  - LOSS OF CONSCIOUSNESS [None]
